FAERS Safety Report 8547337-2 (Version None)
Quarter: 2012Q3

REPORT INFORMATION
  Report Type: 
  Country: None (occurrence: None)
  Receive Date: 20120727
  Receipt Date: 20120319
  Transmission Date: 20120928
  Serious: No
  Sender: FDA-Public Use
  Company Number: US-ASTRAZENECA-2012SE19094

PATIENT
  Age: 10 Year
  Sex: Female

DRUGS (3)
  1. RISPERDAL [Concomitant]
  2. LEXAPRO [Concomitant]
     Route: 050
  3. SEROQUEL [Suspect]
     Indication: AUTISM SPECTRUM DISORDER
     Dosage: 75 MG IN THE MORNING AND 25 MG IN THE EVENING
     Route: 048

REACTIONS (4)
  - DIARRHOEA [None]
  - MANIA [None]
  - OFF LABEL USE [None]
  - DROOLING [None]
